FAERS Safety Report 9025257 (Version 1)
Quarter: 2013Q1

REPORT INFORMATION
  Report Type: Other
  Country: GB (occurrence: GB)
  Receive Date: 20130122
  Receipt Date: 20130122
  Transmission Date: 20140127
  Serious: Yes (Other)
  Sender: FDA-Public Use
  Company Number: GB-WATSON-2013-00868

PATIENT
  Age: 34 Year
  Sex: Female
  Weight: 68 kg

DRUGS (5)
  1. ZOPICLONE [Suspect]
     Indication: INSOMNIA RELATED TO ANOTHER MENTAL CONDITION
     Dosage: 15 MG AT QPM
     Route: 048
     Dates: start: 20101201
  2. LITHIUM CARBONATE [Suspect]
     Indication: BIPOLAR DISORDER
     Dosage: 900 MG QPM
     Route: 048
     Dates: start: 20110501
  3. LAMOTRIGINE (UNKNOWN) [Suspect]
     Indication: BIPOLAR DISORDER
     Dosage: 300 MG, UNKNOWN 100MG IN MORNING AND 200MG AT NIGHT
     Route: 048
     Dates: start: 20101110
  4. SERETIDE [Concomitant]
     Indication: PRODUCT USED FOR UNKNOWN INDICATION
     Dosage: UNK
     Route: 065
  5. CIPROFLOXACIN [Concomitant]
     Indication: PRODUCT USED FOR UNKNOWN INDICATION
     Dosage: UNK
     Route: 065

REACTIONS (1)
  - Memory impairment [Not Recovered/Not Resolved]
